FAERS Safety Report 14225122 (Version 1)
Quarter: 2017Q4

REPORT INFORMATION
  Report Type: Spontaneous
  Country: US (occurrence: None)
  Receive Date: 20171122
  Receipt Date: 20171122
  Transmission Date: 20180321
  Serious: Yes (Hospitalization)
  Sender: FDA-Public Use
  Company Number: None

PATIENT
  Age: 56 Year
  Sex: Female

DRUGS (13)
  1. ACETAMIN [Concomitant]
     Active Substance: ACETAMINOPHEN
  2. ALAWAY [Concomitant]
     Active Substance: KETOTIFEN FUMARATE
  3. CLARITIN [Concomitant]
     Active Substance: LORATADINE
  4. LETROZOLE. [Concomitant]
     Active Substance: LETROZOLE
  5. AFINITOR [Suspect]
     Active Substance: EVEROLIMUS
     Indication: NEOPLASM MALIGNANT
     Route: 048
     Dates: start: 20170517
  6. LORAZEPAM. [Concomitant]
     Active Substance: LORAZEPAM
  7. NAPROXEN SOD [Concomitant]
  8. VIACTIV [Concomitant]
     Active Substance: CALCIUM\VITAMIN D\VITAMIN K5
  9. CALTRATE [Concomitant]
     Active Substance: CALCIUM CARBONATE
  10. METFORMIN [Concomitant]
     Active Substance: METFORMIN HYDROCHLORIDE
  11. ESCITALOPRAM [Concomitant]
     Active Substance: ESCITALOPRAM OXALATE
  12. EXEMESTANE. [Concomitant]
     Active Substance: EXEMESTANE
  13. PREDNISONE. [Concomitant]
     Active Substance: PREDNISONE

REACTIONS (1)
  - Pneumonitis [None]

NARRATIVE: CASE EVENT DATE: 201709
